FAERS Safety Report 6273043-3 (Version None)
Quarter: 2009Q3

REPORT INFORMATION
  Report Type: 
  Country: None (occurrence: None)
  Receive Date: 20090715
  Receipt Date: 20090715
  Transmission Date: 20100115
  Serious: Yes (Life-Threatening)
  Sender: FDA-Public Use
  Company Number: None

PATIENT
  Sex: Male
  Weight: 60.782 kg

DRUGS (1)
  1. MORPHINE [Suspect]
     Indication: BACK PAIN
     Dates: start: 20090619, end: 20090703

REACTIONS (2)
  - HYPOTENSION [None]
  - UNRESPONSIVE TO STIMULI [None]
